FAERS Safety Report 9311772 (Version 2)
Quarter: 2013Q3

REPORT INFORMATION
  Report Type: Spontaneous
  Country: IT (occurrence: IT)
  Receive Date: 20130528
  Receipt Date: 20130731
  Transmission Date: 20140515
  Serious: Yes (Other)
  Sender: FDA-Public Use
  Company Number: PHHY2013IT052488

PATIENT
  Age: 66 Year
  Sex: Female

DRUGS (8)
  1. TEGRETOL [Suspect]
     Indication: EPILEPSY
     Dosage: UNK, DAILY
     Route: 048
     Dates: start: 19920615
  2. ROTIGOTINE [Suspect]
     Indication: PARKINSON^S DISEASE
     Dosage: 8 MG, DAILY
     Route: 062
     Dates: start: 20121015
  3. MADOPAR [Suspect]
     Indication: PARKINSON^S DISEASE
     Dosage: 200 MG, DAILY
     Route: 048
     Dates: start: 20120715
  4. OLMETEC [Suspect]
     Dosage: 20 MG, DAILY
  5. TRAVATAN [Suspect]
  6. CARDIOASPIRIN [Concomitant]
     Indication: ACUTE MYOCARDIAL INFARCTION
     Dosage: UNK UKN, UNK
  7. LESCOL [Concomitant]
     Indication: HYPERCHOLESTEROLAEMIA
     Dosage: UNK UKN, UNK
  8. CARDURA [Concomitant]
     Indication: HYPERTENSION
     Dosage: UNK UKN, UNK

REACTIONS (3)
  - Angiosclerosis [Not Recovered/Not Resolved]
  - Muscular dystrophy [Not Recovered/Not Resolved]
  - Optic neuropathy [Not Recovered/Not Resolved]
